FAERS Safety Report 21012947 (Version 1)
Quarter: 2022Q2

REPORT INFORMATION
  Report Type: Spontaneous
  Country: US (occurrence: US)
  Receive Date: 20220627
  Receipt Date: 20220627
  Transmission Date: 20220721
  Serious: No
  Sender: FDA-Public Use
  Company Number: US-SA-SAC20220617001403

PATIENT
  Age: 50 Year
  Sex: Female

DRUGS (1)
  1. DUPIXENT [Suspect]
     Active Substance: DUPILUMAB
     Indication: Asthma
     Dosage: 300 MG, QOW
     Route: 058
     Dates: start: 20220113

REACTIONS (6)
  - Eyelid irritation [Unknown]
  - Oral discomfort [Unknown]
  - Eyelids pruritus [Unknown]
  - Oral pruritus [Unknown]
  - Pruritus [Unknown]
  - Product dose omission issue [Unknown]
